FAERS Safety Report 25943987 (Version 1)
Quarter: 2025Q4

REPORT INFORMATION
  Report Type: Spontaneous
  Country: CN (occurrence: CN)
  Receive Date: 20251021
  Receipt Date: 20251021
  Transmission Date: 20260118
  Serious: Yes (Other)
  Sender: ALEXION PHARMACEUTICALS
  Company Number: CN-ASTRAZENECA-202510GLO015918CN

PATIENT
  Age: 56 Year
  Sex: Female

DRUGS (3)
  1. OSIMERTINIB [Suspect]
     Active Substance: OSIMERTINIB
     Indication: Lung adenocarcinoma stage IV
     Dosage: 80 MILLIGRAM, QD
     Route: 065
     Dates: start: 20231113
  2. DABRAFENIB [Concomitant]
     Active Substance: DABRAFENIB
     Indication: Lung adenocarcinoma stage IV
     Dosage: 150 MILLIGRAM, BID
     Route: 065
     Dates: start: 20240219
  3. TRAMETINIB [Concomitant]
     Active Substance: TRAMETINIB
     Indication: Lung adenocarcinoma stage IV
     Dosage: 2 MILLIGRAM, QD
     Route: 065
     Dates: start: 20240219

REACTIONS (5)
  - Malignant neoplasm progression [Unknown]
  - Drug resistance [Unknown]
  - Drug resistance mutation [Unknown]
  - BRAF V600E mutation positive [Unknown]
  - Rash [Unknown]
